FAERS Safety Report 5233253-0 (Version None)
Quarter: 2007Q1

REPORT INFORMATION
  Report Type: 
  Country: None (occurrence: None)
  Receive Date: 20070206
  Receipt Date: 20070123
  Transmission Date: 20070707
  Serious: Yes (Death)
  Sender: FDA-Public Use
  Company Number: 2006BI017889

PATIENT
  Age: 71 Year
  Sex: Male

DRUGS (9)
  1. AVONEX [Suspect]
     Indication: MULTIPLE SCLEROSIS
     Dosage: 30 UG; QW; IM
     Route: 030
     Dates: start: 19960901
  2. AVONEX [Suspect]
     Indication: MULTIPLE SCLEROSIS
     Dosage: 30 UG; QW; IM
     Route: 030
  3. FIBERCON [Concomitant]
  4. VITAMINS [Concomitant]
  5. ASPIRIN [Concomitant]
  6. EFFEXOR [Concomitant]
  7. DITROPAN [Concomitant]
  8. POTASSIUM ACETATE [Concomitant]
  9. NAMENDA [Concomitant]

REACTIONS (2)
  - CORONARY ARTERY DISEASE [None]
  - MYOCARDIAL INFARCTION [None]
